FAERS Safety Report 15116446 (Version 1)
Quarter: 2018Q3

REPORT INFORMATION
  Report Type: Spontaneous
  Country: ES (occurrence: ES)
  Receive Date: 20180706
  Receipt Date: 20180706
  Transmission Date: 20181010
  Serious: Yes (Other)
  Sender: FDA-Public Use
  Company Number: ES-PFIZER INC-2018269590

PATIENT
  Age: 57 Year
  Sex: Male

DRUGS (2)
  1. VERAPAMIL [Suspect]
     Active Substance: VERAPAMIL HYDROCHLORIDE
     Indication: NEPHROANGIOSCLEROSIS
     Dosage: 240 MG, 1X/DAY
     Route: 048
     Dates: start: 20180522
  2. AMLODIPINE BESILATE [Suspect]
     Active Substance: AMLODIPINE BESYLATE
     Indication: HYPERTENSION
     Dosage: 1 DF, 1X/DAY, (ONE TABLET IN THE MORNING)
     Route: 048
     Dates: start: 20120703

REACTIONS (2)
  - Tooth loss [Recovered/Resolved with Sequelae]
  - Gingival hypertrophy [Recovered/Resolved with Sequelae]

NARRATIVE: CASE EVENT DATE: 2017
